FAERS Safety Report 13374304 (Version 2)
Quarter: 2017Q2

REPORT INFORMATION
  Report Type: Report from Study
  Country: AU (occurrence: AU)
  Receive Date: 20170327
  Receipt Date: 20170417
  Transmission Date: 20170912
  Serious: Yes (Life-Threatening)
  Sender: FDA-Public Use
  Company Number: AU-JNJFOC-20170320507

PATIENT
  Age: 61 Year
  Sex: Female
  Weight: 50 kg

DRUGS (9)
  1. PANADOL [Concomitant]
     Active Substance: ACETAMINOPHEN
     Route: 065
  2. NEXIUM [Concomitant]
     Route: 065
  3. YONDELIS [Suspect]
     Active Substance: TRABECTEDIN
     Route: 042
  4. STEMETIL [Concomitant]
     Active Substance: PROCHLORPERAZINE MALEATE
     Dosage: AS REQUIRED
     Route: 065
  5. DULCOLAX NOS [Concomitant]
     Active Substance: BISACODYL OR DOCUSATE SODIUM
     Dosage: AS REQUIRED
     Route: 065
  6. XARELTO [Concomitant]
     Route: 048
  7. DUROGESIC [Concomitant]
     Active Substance: FENTANYL
     Route: 065
  8. METHADONE HYDROCHLORIDE. [Concomitant]
     Active Substance: METHADONE HYDROCHLORIDE
     Route: 065
  9. STILNOX [Concomitant]
     Active Substance: ZOLPIDEM TARTRATE
     Route: 065

REACTIONS (1)
  - Acute myeloid leukaemia [Not Recovered/Not Resolved]

NARRATIVE: CASE EVENT DATE: 20170207
